FAERS Safety Report 4436040-6 (Version None)
Quarter: 2004Q3

REPORT INFORMATION
  Report Type: 
  Country: None (occurrence: None)
  Receive Date: 20040726
  Receipt Date: 20040427
  Transmission Date: 20050211
  Serious: No
  Sender: FDA-Public Use
  Company Number: USA040465197

PATIENT
  Age: 82 Year
  Sex: Male

DRUGS (2)
  1. FORTEO [Suspect]
     Indication: OSTEOPOROSIS
     Dates: start: 20040409
  2. FOSAMAX [Concomitant]

REACTIONS (3)
  - BACK PAIN [None]
  - NAUSEA [None]
  - PAIN IN EXTREMITY [None]
